FAERS Safety Report 12222767 (Version 1)
Quarter: 2016Q1

REPORT INFORMATION
  Report Type: Spontaneous
  Country: US (occurrence: US)
  Receive Date: 20160330
  Receipt Date: 20160330
  Transmission Date: 20160526
  Serious: Yes (Death)
  Sender: FDA-Public Use
  Company Number: US-INSYS THERAPEUTICS, INC-INS201603-000129

PATIENT
  Sex: Male

DRUGS (2)
  1. FENTANYL TRANSDERMAL SYSTEM [Concomitant]
     Active Substance: FENTANYL
     Indication: CANCER PAIN
  2. SUBSYS [Suspect]
     Active Substance: FENTANYL
     Indication: CANCER PAIN
     Dates: start: 20160203, end: 20160206

REACTIONS (1)
  - Death [Fatal]
